FAERS Safety Report 16222697 (Version 1)
Quarter: 2019Q2

REPORT INFORMATION
  Report Type: Spontaneous
  Country: US (occurrence: US)
  Receive Date: 20190419
  Receipt Date: 20190419
  Transmission Date: 20190711
  Serious: Yes (Other)
  Sender: FDA-Public Use
  Company Number: None

PATIENT
  Sex: Male
  Weight: 85 kg

DRUGS (5)
  1. VITAMIN D NOS [Concomitant]
     Active Substance: VITAMIN D NOS
  2. MASTIC GUM [Concomitant]
  3. LOSARTAN. [Concomitant]
     Active Substance: LOSARTAN
  4. AMLODIPINE [Concomitant]
     Active Substance: AMLODIPINE BESYLATE
  5. SUTENT [Suspect]
     Active Substance: SUNITINIB MALATE
     Indication: RENAL CANCER
     Dosage: ?          OTHER FREQUENCY:BID 2WK ON 1WK OFF;?
     Route: 048
     Dates: start: 20180731

REACTIONS (3)
  - Palmar-plantar erythrodysaesthesia syndrome [None]
  - Blister [None]
  - Pain [None]
